FAERS Safety Report 7212984-7 (Version None)
Quarter: 2011Q1

REPORT INFORMATION
  Report Type: 
  Country: None (occurrence: None)
  Receive Date: 20110106
  Receipt Date: 20101230
  Transmission Date: 20110831
  Serious: Yes (Life-Threatening, Other)
  Sender: FDA-Public Use
  Company Number: A0902221A

PATIENT
  Age: 66 Year
  Sex: Male

DRUGS (1)
  1. PROMACTA [Suspect]
     Indication: IDIOPATHIC THROMBOCYTOPENIC PURPURA
     Dosage: 50MG PER DAY
     Route: 048
     Dates: start: 20101015, end: 20101220

REACTIONS (4)
  - DIFFUSE LARGE B-CELL LYMPHOMA [None]
  - ANAEMIA [None]
  - PLATELET COUNT INCREASED [None]
  - THROMBOCYTOPENIA [None]
